FAERS Safety Report 4381383-8 (Version None)
Quarter: 2004Q2

REPORT INFORMATION
  Report Type: 
  Country: None (occurrence: None)
  Receive Date: 20040616
  Receipt Date: 20040527
  Transmission Date: 20050107
  Serious: Yes (Other)
  Sender: FDA-Public Use
  Company Number: US_0405103276

PATIENT
  Age: 26 Year
  Sex: Male
  Weight: 66 kg

DRUGS (8)
  1. FORTEO [Suspect]
     Indication: OSTEOPOROSIS
     Dosage: 20 UG/1 DAY
     Dates: start: 20030117
  2. STRATTERA [Suspect]
     Dates: end: 20040201
  3. TESTOSTERONE [Concomitant]
  4. PROPECIA [Concomitant]
  5. ALEVE [Concomitant]
  6. CALCIUM [Concomitant]
  7. GLUCOSAMINE [Concomitant]
  8. RITALIN LA [Concomitant]

REACTIONS (2)
  - BONE DENSITY DECREASED [None]
  - HIP FRACTURE [None]
